FAERS Safety Report 6297365-5 (Version None)
Quarter: 2009Q3

REPORT INFORMATION
  Report Type: 
  Country: None (occurrence: None)
  Receive Date: 20090805
  Receipt Date: 20090729
  Transmission Date: 20100115
  Serious: Yes (Other)
  Sender: FDA-Public Use
  Company Number: GB-JNJFOC-20090709387

PATIENT
  Age: 43 Year
  Sex: Female

DRUGS (7)
  1. SPORANOX [Suspect]
     Indication: BRONCHOPULMONARY ASPERGILLOSIS
     Route: 048
  2. ALENDRONIC ACID [Concomitant]
     Route: 048
  3. BUDESONIDE [Concomitant]
     Route: 055
  4. CALCIUM/COLECALCIFEROL [Concomitant]
     Route: 048
  5. CETIRIZINE [Concomitant]
     Route: 048
  6. FORMOTEROL FUMARATE [Concomitant]
     Route: 055
  7. SALBUTAMOL [Concomitant]
     Route: 055

REACTIONS (2)
  - ABDOMINAL PAIN [None]
  - BLOOD AMYLASE INCREASED [None]
